FAERS Safety Report 7980901-8 (Version None)
Quarter: 2011Q4

REPORT INFORMATION
  Report Type: 
  Country: None (occurrence: None)
  Receive Date: 20111215
  Receipt Date: 20111206
  Transmission Date: 20120403
  Serious: No
  Sender: FDA-Public Use
  Company Number: US-ALVOGEN-2011AL000095

PATIENT
  Age: 19 Year
  Sex: Female

DRUGS (1)
  1. MACROBID [Suspect]
     Indication: URINARY TRACT INFECTION
     Dosage: TWO DOSES OF NITROFURANTOIN MONOHYDRATE MACROCRYSTAL CAPSULES WERE GIVEN
     Route: 048
     Dates: start: 20111111, end: 20111111

REACTIONS (5)
  - NECK PAIN [None]
  - HEADACHE [None]
  - PYREXIA [None]
  - ABDOMINAL PAIN [None]
  - BACK PAIN [None]
